FAERS Safety Report 8121731-6 (Version None)
Quarter: 2012Q1

REPORT INFORMATION
  Report Type: 
  Country: None (occurrence: None)
  Receive Date: 20120207
  Receipt Date: 20120207
  Transmission Date: 20120608
  Serious: Yes (Death)
  Sender: FDA-Public Use
  Company Number: None

PATIENT
  Age: 62 Year
  Sex: Male
  Weight: 102.5129 kg

DRUGS (1)
  1. GABAPENTIN [Suspect]
     Indication: NEUROPATHY PERIPHERAL
     Dosage: TWO CAPSULES 3 TIMES PERDAY BY MOUTH
     Route: 048
     Dates: start: 20081201

REACTIONS (3)
  - COMPLETED SUICIDE [None]
  - AUTOPHOBIA [None]
  - ABNORMAL BEHAVIOUR [None]
